FAERS Safety Report 6061888-4 (Version None)
Quarter: 2009Q1

REPORT INFORMATION
  Report Type: 
  Country: None (occurrence: None)
  Receive Date: 20090202
  Receipt Date: 20090121
  Transmission Date: 20090719
  Serious: Yes (Hospitalization)
  Sender: FDA-Public Use
  Company Number: PHHY2009MX02671

PATIENT
  Sex: Female

DRUGS (5)
  1. DIOVAN HCT [Suspect]
     Indication: HYPERTENSION
     Dosage: 80/12.5 MG PER DAY
     Route: 048
     Dates: start: 20070501
  2. NIFEDIPINE [Concomitant]
     Indication: HYPERTENSION
  3. ACETYLSALICYLIC ACID SRT [Concomitant]
     Indication: HYPERTENSION
  4. METFORMIN [Concomitant]
     Indication: DIABETES MELLITUS
     Dosage: 850 MG PER DAY
     Dates: start: 20070501
  5. AMIODARONE [Concomitant]
     Indication: ACUTE MYOCARDIAL INFARCTION
     Dosage: 0.5 TABLET PER DAY
     Route: 048

REACTIONS (3)
  - BLOOD GLUCOSE INCREASED [None]
  - HYPERTENSION [None]
  - METABOLIC DISORDER [None]
